FAERS Safety Report 9494694 (Version 1)
Quarter: 2013Q3

REPORT INFORMATION
  Report Type: Spontaneous
  Country: ES (occurrence: ES)
  Receive Date: 20130903
  Receipt Date: 20130903
  Transmission Date: 20140515
  Serious: Yes (Hospitalization)
  Sender: FDA-Public Use
  Company Number: ES-BAYER-2013-104645

PATIENT
  Age: 38 Year
  Sex: Male

DRUGS (4)
  1. ASPIRINA [Suspect]
     Indication: COXSACKIE MYOCARDITIS
     Dosage: 1000 MG, TID
     Route: 048
     Dates: start: 20130118, end: 20130130
  2. COLCHIMAX [COLCHICINE,DICYCLOVERINE HYDROCHLORIDE] [Suspect]
     Indication: HYPERURICAEMIA
     Dosage: 1 DF, BID
     Route: 048
     Dates: start: 20130121, end: 20130128
  3. ENALAPRIL [Suspect]
     Indication: HYPERTENSION
     Dosage: .5 MG, QD
     Route: 048
     Dates: start: 20130119, end: 20130128
  4. PANTOPRAZOLE [Concomitant]
     Indication: PROPHYLAXIS AGAINST GASTROINTESTINAL ULCER
     Dosage: 40 MG, QD
     Route: 048
     Dates: start: 20130118

REACTIONS (1)
  - Hepatitis [Recovered/Resolved]
